FAERS Safety Report 12209078 (Version 3)
Quarter: 2016Q2

REPORT INFORMATION
  Report Type: Spontaneous
  Country: US (occurrence: US)
  Receive Date: 20160324
  Receipt Date: 20160615
  Transmission Date: 20160815
  Serious: Yes (Other)
  Sender: FDA-Public Use
  Company Number: US-PFIZER INC-2016168433

PATIENT
  Age: 53 Year
  Sex: Female
  Weight: 95 kg

DRUGS (13)
  1. PRISTIQ EXTENDED-RELEASE [Suspect]
     Active Substance: DESVENLAFAXINE SUCCINATE
     Indication: MAJOR DEPRESSION
     Dosage: UNK
     Route: 048
  2. PRISTIQ EXTENDED-RELEASE [Suspect]
     Active Substance: DESVENLAFAXINE SUCCINATE
     Dosage: 100 MG, DAILY
     Route: 048
     Dates: end: 20160303
  3. PRISTIQ EXTENDED-RELEASE [Suspect]
     Active Substance: DESVENLAFAXINE SUCCINATE
     Dosage: 50 MG, UNK
     Dates: start: 20160303
  4. PRISTIQ EXTENDED-RELEASE [Suspect]
     Active Substance: DESVENLAFAXINE SUCCINATE
     Indication: POST-TRAUMATIC STRESS DISORDER
     Dosage: 100 MG, 1X/DAY
     Route: 048
  5. NORCO [Concomitant]
     Active Substance: ACETAMINOPHEN\HYDROCODONE BITARTRATE
     Indication: BACK PAIN
     Dosage: 7.5 / 325
     Dates: start: 2001
  6. FLEXERIL [Concomitant]
     Active Substance: CYCLOBENZAPRINE HYDROCHLORIDE
     Indication: MUSCLE SPASMS
  7. LISINOPRIL. [Concomitant]
     Active Substance: LISINOPRIL
     Indication: BLOOD PRESSURE ABNORMAL
     Dosage: 5 MG, UNK
     Dates: start: 2006
  8. FIBERCHOICE [Concomitant]
     Active Substance: INULIN
     Indication: DIVERTICULUM
     Dosage: 100 MG, 4X/DAY, IN THE MORNING AND BEFORE EVERY MEAL
  9. FLEXERIL [Concomitant]
     Active Substance: CYCLOBENZAPRINE HYDROCHLORIDE
     Indication: MUSCLE RELAXANT THERAPY
     Dosage: 5 MG, AS NEEDED
     Dates: start: 2001
  10. FLEXERIL [Concomitant]
     Active Substance: CYCLOBENZAPRINE HYDROCHLORIDE
     Indication: BACK PAIN
  11. PRISTIQ EXTENDED-RELEASE [Suspect]
     Active Substance: DESVENLAFAXINE SUCCINATE
     Dosage: 50 MG, UNK
     Dates: start: 20160321
  12. ALBUTEROL. [Concomitant]
     Active Substance: ALBUTEROL
     Indication: CHRONIC OBSTRUCTIVE PULMONARY DISEASE
     Dosage: UNK UNK, AS NEEDED
     Route: 055
     Dates: start: 2006
  13. KIRKLAND MATURE MULTIVITAMIN [Concomitant]
     Indication: VITAMIN SUPPLEMENTATION
     Dosage: 1 DF, 1X/DAY
     Dates: start: 1999

REACTIONS (22)
  - Hypertension [Unknown]
  - Condition aggravated [Unknown]
  - Headache [Recovering/Resolving]
  - Muscle twitching [Recovered/Resolved with Sequelae]
  - Phobia of driving [Recovering/Resolving]
  - Decreased appetite [Unknown]
  - Personality disorder [Unknown]
  - Incorrect dose administered [Unknown]
  - Feeling abnormal [Unknown]
  - Tinnitus [Recovering/Resolving]
  - Nausea [Recovering/Resolving]
  - Vomiting [Recovered/Resolved with Sequelae]
  - Nervousness [Unknown]
  - Myalgia [Recovering/Resolving]
  - Impaired work ability [Recovered/Resolved]
  - Disturbance in attention [Unknown]
  - Crying [Recovering/Resolving]
  - Eructation [Unknown]
  - Mental disorder [Unknown]
  - Drug withdrawal syndrome [Recovered/Resolved]
  - Loss of proprioception [Recovering/Resolving]
  - Hyperhidrosis [Unknown]

NARRATIVE: CASE EVENT DATE: 2015
